FAERS Safety Report 17685409 (Version 1)
Quarter: 2020Q2

REPORT INFORMATION
  Report Type: Spontaneous
  Country: US (occurrence: US)
  Receive Date: 20200417
  Receipt Date: 20200417
  Transmission Date: 20200714
  Serious: No
  Sender: FDA-Public Use
  Company Number: None

PATIENT
  Age: 48 Year
  Sex: Male

DRUGS (1)
  1. MAVYRET [Suspect]
     Active Substance: GLECAPREVIR\PIBRENTASVIR
     Dosage: OTHER DOSE:300-120MG;? FEB-2020 - PRESENT
     Route: 048
     Dates: start: 202002

REACTIONS (2)
  - Hepatic cirrhosis [None]
  - Ascites [None]

NARRATIVE: CASE EVENT DATE: 20200127
